FAERS Safety Report 7539620-4 (Version None)
Quarter: 2011Q2

REPORT INFORMATION
  Report Type: 
  Country: None (occurrence: None)
  Receive Date: 20110610
  Receipt Date: 20110606
  Transmission Date: 20111010
  Serious: Yes (Other)
  Sender: FDA-Public Use
  Company Number: US-BRISTOL-MYERS SQUIBB COMPANY-15805716

PATIENT
  Age: 60 Year
  Sex: Female

DRUGS (3)
  1. STAVUDINE [Suspect]
     Indication: HIV INFECTION
     Dates: start: 20040501
  2. LAMIVUDINE [Suspect]
     Indication: HIV INFECTION
     Dosage: RESTARTED ON SEP2005
     Dates: start: 20040501
  3. NELFINAVIR MESYLATE [Suspect]
     Indication: HIV INFECTION
     Dosage: RESTARTED ON SEP2005
     Dates: start: 20040501

REACTIONS (2)
  - PULMONARY SARCOIDOSIS [None]
  - LIPODYSTROPHY ACQUIRED [None]
